FAERS Safety Report 9540641 (Version 2)
Quarter: 2013Q3

REPORT INFORMATION
  Report Type: Spontaneous
  Country: US (occurrence: US)
  Receive Date: 20130920
  Receipt Date: 20130920
  Transmission Date: 20140515
  Serious: Yes (Other)
  Sender: FDA-Public Use
  Company Number: CHPA2013US014117

PATIENT
  Age: 42 Year
  Sex: Male

DRUGS (1)
  1. VOLTAREN GEL [Suspect]
     Dosage: 1/4 INCH, BID
     Route: 061

REACTIONS (16)
  - Blood pressure increased [Recovered/Resolved]
  - Monoparesis [Unknown]
  - Oropharyngeal pain [Not Recovered/Not Resolved]
  - Pharyngeal erythema [Not Recovered/Not Resolved]
  - Hypoaesthesia [Recovered/Resolved]
  - Sinus disorder [Recovering/Resolving]
  - Nasal oedema [Not Recovered/Not Resolved]
  - Headache [Unknown]
  - Eye movement disorder [Unknown]
  - Malaise [Unknown]
  - Stress [Unknown]
  - Nasal dryness [Not Recovered/Not Resolved]
  - Weight increased [Unknown]
  - Dyspnoea [Recovered/Resolved]
  - Off label use [Unknown]
  - Therapeutic response unexpected [Unknown]
